FAERS Safety Report 23068983 (Version 1)
Quarter: 2023Q4

REPORT INFORMATION
  Report Type: Report from Study
  Country: IN (occurrence: IN)
  Receive Date: 20231016
  Receipt Date: 20231016
  Transmission Date: 20240109
  Serious: Yes (Other)
  Sender: FDA-Public Use
  Company Number: IN-MYLANLABS-2023M1108137

PATIENT

DRUGS (17)
  1. METHOTREXATE [Suspect]
     Active Substance: METHOTREXATE
     Indication: Philadelphia chromosome positive
     Dosage: UNK, 3 DOSES
     Route: 037
  2. METHOTREXATE [Suspect]
     Active Substance: METHOTREXATE
     Indication: Acute lymphocytic leukaemia
     Dosage: UNK, RECEIVED 2 DOSES DURING SECOND INDUCTION CHEMOTHERAPY
     Route: 037
  3. METHOTREXATE [Suspect]
     Active Substance: METHOTREXATE
     Dosage: UNK, MONTHLY (POST TRANSPLANTATION, 6 DOSES)
     Route: 037
  4. CYTARABINE [Suspect]
     Active Substance: CYTARABINE
     Indication: Philadelphia chromosome positive
     Dosage: 75 MILLIGRAM/SQ. METER
     Route: 065
  5. CYTARABINE [Suspect]
     Active Substance: CYTARABINE
     Indication: Acute lymphocytic leukaemia
  6. IMATINIB [Suspect]
     Active Substance: IMATINIB
     Indication: Philadelphia chromosome positive
     Dosage: 400 MILLIGRAM, QD
     Route: 065
  7. IMATINIB [Suspect]
     Active Substance: IMATINIB
     Indication: Acute lymphocytic leukaemia
     Dosage: 600 MILLIGRAM, QD
     Route: 065
  8. PREDNISOLONE [Suspect]
     Active Substance: PREDNISOLONE
     Indication: Philadelphia chromosome positive
     Dosage: 60 MILLIGRAM/SQ. METER (DAY 1 TO DAY 28)
     Route: 065
  9. PREDNISOLONE [Suspect]
     Active Substance: PREDNISOLONE
     Indication: Acute lymphocytic leukaemia
  10. VINCRISTINE [Suspect]
     Active Substance: VINCRISTINE
     Indication: Philadelphia chromosome positive
     Dosage: 1.5 MILLIGRAM/SQ. METER [DAY 8 (D8), D15, D22 AND D29]
     Route: 065
  11. VINCRISTINE [Suspect]
     Active Substance: VINCRISTINE
     Indication: Acute lymphocytic leukaemia
  12. MERCAPTOPURINE [Suspect]
     Active Substance: MERCAPTOPURINE
     Indication: Philadelphia chromosome positive
     Dosage: 60 MILLIGRAM/SQ. METER (D34-D61)
     Route: 065
  13. MERCAPTOPURINE [Suspect]
     Active Substance: MERCAPTOPURINE
     Indication: Acute lymphocytic leukaemia
  14. CYCLOPHOSPHAMIDE [Suspect]
     Active Substance: CYCLOPHOSPHAMIDE
     Indication: Philadelphia chromosome positive
     Dosage: 1 GRAM PER SQUARE METRE ( ON D34 AND D61)
     Route: 065
  15. CYCLOPHOSPHAMIDE [Suspect]
     Active Substance: CYCLOPHOSPHAMIDE
     Indication: Acute lymphocytic leukaemia
     Dosage: 60 MILLIGRAM/KILOGRAM (TOTAL BODY IRRADIATION,FOR 2 DAYS)
     Route: 065
  16. PLERIXAFOR [Suspect]
     Active Substance: PLERIXAFOR
     Indication: Philadelphia chromosome positive
     Dosage: 0.24 MILLIGRAM/KILOGRAM
     Route: 065
  17. PLERIXAFOR [Suspect]
     Active Substance: PLERIXAFOR
     Indication: Acute lymphocytic leukaemia

REACTIONS (4)
  - Febrile neutropenia [Unknown]
  - Nausea [Unknown]
  - Vomiting [Unknown]
  - Stomatitis [Unknown]
